FAERS Safety Report 14962656 (Version 1)
Quarter: 2018Q2

REPORT INFORMATION
  Report Type: Spontaneous
  Country: DK (occurrence: DK)
  Receive Date: 20180601
  Receipt Date: 20180601
  Transmission Date: 20180711
  Serious: Yes (Death, Life-Threatening)
  Sender: FDA-Public Use
  Company Number: DK-ROCHE-2132829

PATIENT
  Age: 81 Year
  Sex: Female
  Weight: 60 kg

DRUGS (3)
  1. CAPECITABIN STADA [Concomitant]
     Indication: RECTAL CANCER
     Dosage: STYRKE: 500 MG SAMT 150 MG.
     Route: 048
     Dates: start: 20180331, end: 20180507
  2. AVASTIN [Suspect]
     Active Substance: BEVACIZUMAB
     Indication: RECTAL CANCER
     Dosage: STRENGTH: 25 MG/ML.
     Route: 042
     Dates: start: 20180331, end: 20180507
  3. OXALIPLATIN ACCORD [Concomitant]
     Active Substance: OXALIPLATIN
     Indication: RECTAL CANCER
     Dosage: STRENGTH: 5 MG/ML.
     Route: 042
     Dates: start: 20180331, end: 20180507

REACTIONS (3)
  - Peritonitis [Fatal]
  - Large intestine perforation [Fatal]
  - Colon operation [Recovered/Resolved]

NARRATIVE: CASE EVENT DATE: 20180507
